FAERS Safety Report 4559137-9 (Version None)
Quarter: 2005Q1

REPORT INFORMATION
  Report Type: 
  Country: None (occurrence: None)
  Receive Date: 20050121
  Receipt Date: 20050121
  Transmission Date: 20050727
  Serious: No
  Sender: FDA-Public Use
  Company Number: None

PATIENT
  Sex: Female

DRUGS (6)
  1. WARFARIN [Suspect]
     Indication: ATRIAL FIBRILLATION
  2. CRANBERRY JUICE [Suspect]
  3. DIGOXIN [Concomitant]
  4. BUMETANIDE [Concomitant]
  5. ALLOPURINOL [Concomitant]
  6. FERROUS SULFATE TAB [Concomitant]

REACTIONS (2)
  - FOOD INTERACTION [None]
  - INTERNATIONAL NORMALISED RATIO INCREASED [None]
